FAERS Safety Report 9061933 (Version 1)
Quarter: 2013Q1

REPORT INFORMATION
  Report Type: Spontaneous
  Country: GB (occurrence: None)
  Receive Date: 20130118
  Receipt Date: 20130118
  Transmission Date: 20140127
  Serious: Yes (Death, Hospitalization, Other)
  Sender: FDA-Public Use
  Company Number: ABR_00792_2013

PATIENT
  Age: 10 Month
  Sex: Female

DRUGS (6)
  1. ERYTHROCIN [Suspect]
     Indication: NASOPHARYNGITIS
     Dates: start: 20121126
  2. DIAZEPAM (DIAZEPAM) [Suspect]
     Route: 054
     Dates: start: 20121127, end: 20121127
  3. MIDAZOLAM HYDROCHLORIDE [Suspect]
     Dosage: 2.5 MG, AS REQUIRED
     Dates: start: 2012
  4. PHENYTOIN [Suspect]
     Dosage: (NOT OTHERWISE SPECIFIED))
     Route: 042
     Dates: start: 20121127, end: 20121127
  5. LEVETIRACETAM [Concomitant]
  6. VALPROATE SODIUM [Concomitant]

REACTIONS (7)
  - Cardiac arrest neonatal [None]
  - Drug interaction [None]
  - Respiratory acidosis [None]
  - Hypoventilation [None]
  - Tachycardia [None]
  - Drug ineffective [None]
  - Convulsion [None]
